FAERS Safety Report 13648301 (Version 2)
Quarter: 2017Q4

REPORT INFORMATION
  Report Type: Spontaneous
  Country: JP (occurrence: JP)
  Receive Date: 20170613
  Receipt Date: 20171019
  Transmission Date: 20180320
  Serious: Yes (Hospitalization)
  Sender: FDA-Public Use
  Company Number: JP-ELI_LILLY_AND_COMPANY-JP201706002480

PATIENT
  Age: 46 Year
  Sex: Female
  Weight: 42 kg

DRUGS (3)
  1. CYRAMZA [Suspect]
     Active Substance: RAMUCIRUMAB
     Indication: GASTRIC CANCER
     Dosage: 350 MG, CYCLICAL
     Route: 042
     Dates: start: 20161226, end: 20170510
  2. LOBU [Concomitant]
     Active Substance: LOBUCAVIR
     Indication: CANCER PAIN
     Dosage: 180 MG, DAILY
     Dates: start: 20161221, end: 20170524
  3. PACLITAXEL. [Concomitant]
     Active Substance: PACLITAXEL
     Indication: GASTRIC CANCER
     Dosage: 100 MG, CYCLICAL
     Route: 042
     Dates: start: 20161226, end: 20170510

REACTIONS (3)
  - Intestinal perforation [Not Recovered/Not Resolved]
  - Haematochezia [Unknown]
  - Peritonitis [Recovered/Resolved with Sequelae]

NARRATIVE: CASE EVENT DATE: 20170525
